FAERS Safety Report 14154306 (Version 1)
Quarter: 2017Q4

REPORT INFORMATION
  Report Type: Spontaneous
  Country: JP (occurrence: JP)
  Receive Date: 20171102
  Receipt Date: 20171102
  Transmission Date: 20180321
  Serious: Yes (Other)
  Sender: FDA-Public Use
  Company Number: JP-PFIZER INC-2017470565

PATIENT
  Sex: Male

DRUGS (2)
  1. GABAPEN [Suspect]
     Active Substance: GABAPENTIN
     Dosage: UNK
  2. E KEPPRA [Concomitant]
     Active Substance: LEVETIRACETAM
     Dosage: UNK

REACTIONS (1)
  - Change in seizure presentation [Unknown]
